FAERS Safety Report 10559992 (Version 6)
Quarter: 2016Q1

REPORT INFORMATION
  Report Type: Spontaneous
  Country: JP (occurrence: JP)
  Receive Date: 20141103
  Receipt Date: 20160113
  Transmission Date: 20160525
  Serious: Yes (Death, Hospitalization)
  Sender: FDA-Public Use
  Company Number: PHJP2014JP001272

PATIENT
  Age: 88 Year
  Sex: Male

DRUGS (9)
  1. NEUROTROPIN [Suspect]
     Active Substance: NEUROTROPIN
     Dosage: UNK
     Route: 048
     Dates: start: 20140828, end: 20140907
  2. GOREISAN [Suspect]
     Active Substance: HERBALS
     Dosage: UNK
     Route: 048
     Dates: start: 20140828, end: 20140907
  3. LYRICA [Suspect]
     Active Substance: PREGABALIN
     Indication: POST HERPETIC NEURALGIA
     Dosage: 525 MG, QD
     Route: 048
     Dates: start: 20140627, end: 20140630
  4. LYRICA [Suspect]
     Active Substance: PREGABALIN
     Dosage: 150 MG, QD
     Route: 048
     Dates: start: 20140828, end: 20140907
  5. TEGRETOL [Suspect]
     Active Substance: CARBAMAZEPINE
     Indication: PRODUCT USED FOR UNKNOWN INDICATION
     Dosage: 200 MG, UNK
     Route: 048
     Dates: start: 20140801, end: 20140818
  6. LYRICA [Suspect]
     Active Substance: PREGABALIN
     Dosage: 300 MG, QD
     Route: 048
     Dates: start: 20140801, end: 20140818
  7. NEUROTROPIN [Suspect]
     Active Substance: NEUROTROPIN
     Indication: PRODUCT USED FOR UNKNOWN INDICATION
     Dosage: UNK
     Route: 048
     Dates: start: 20140801, end: 20140818
  8. GOREISAN [Suspect]
     Active Substance: HERBALS
     Indication: PRODUCT USED FOR UNKNOWN INDICATION
     Dosage: UNK
     Route: 048
     Dates: start: 20140801, end: 20140818
  9. LYRICA [Suspect]
     Active Substance: PREGABALIN
     Dosage: 600 MG, QD (75 MG X 8 CAPSULES)
     Route: 048
     Dates: start: 20140701, end: 20140731

REACTIONS (3)
  - Death [Fatal]
  - Platelet count decreased [Recovered/Resolved]
  - Haemorrhage subcutaneous [Unknown]

NARRATIVE: CASE EVENT DATE: 20140818
